FAERS Safety Report 5603127-1 (Version None)
Quarter: 2008Q1

REPORT INFORMATION
  Report Type: 
  Country: None (occurrence: None)
  Receive Date: 20080123
  Receipt Date: 20080111
  Transmission Date: 20080703
  Serious: Yes (Other)
  Sender: FDA-Public Use
  Company Number: CHPA2008US00805

PATIENT
  Age: 30 Year
  Sex: Female

DRUGS (2)
  1. EX-LAX MAX STR LAX PILLS SENNA (NCH)(SENNA GLYCOSIDES (CA SALTS OF PUR [Suspect]
     Indication: LAXATIVE SUPPORTIVE CARE
     Dosage: ORAL, 150 MG, ONCE/SINGLE, ORAL
     Route: 048
     Dates: start: 20080110, end: 20080110
  2. EX-LAX MAX STR LAX PILLS SENNA (NCH)(SENNA GLYCOSIDES (CA SALTS OF PUR [Suspect]
     Indication: LAXATIVE SUPPORTIVE CARE
     Dosage: ORAL, 150 MG, ONCE/SINGLE, ORAL
     Route: 048
     Dates: start: 20071201

REACTIONS (3)
  - HAEMATOCHEZIA [None]
  - INTENTIONAL DRUG MISUSE [None]
  - OVERDOSE [None]
